FAERS Safety Report 4486968-6 (Version None)
Quarter: 2004Q4

REPORT INFORMATION
  Report Type: 
  Country: None (occurrence: None)
  Receive Date: 20041022
  Receipt Date: 20041012
  Transmission Date: 20050328
  Serious: Yes (Hospitalization, Other)
  Sender: FDA-Public Use
  Company Number: 2004238381DE

PATIENT
  Age: 17 Year
  Sex: Male
  Weight: 35 kg

DRUGS (3)
  1. GENOTROPIN [Suspect]
     Indication: BODY HEIGHT BELOW NORMAL
     Dosage: SUBCUTANEOUS
     Route: 058
     Dates: start: 20030206, end: 20040406
  2. CELLCEPT [Suspect]
     Dosage: 500 MG, QD,
  3. PREDNISONE TAB [Suspect]
     Dosage: 7.5 MG,

REACTIONS (1)
  - HISTIOCYTOSIS HAEMATOPHAGIC [None]
